FAERS Safety Report 4771322-X (Version None)
Quarter: 2005Q3

REPORT INFORMATION
  Report Type: 
  Country: None (occurrence: None)
  Receive Date: 20050915
  Receipt Date: 20041116
  Transmission Date: 20060218
  Serious: Yes (Hospitalization, Disabling)
  Sender: FDA-Public Use
  Company Number: FR-MERCK-0411FRA00048

PATIENT
  Age: 52 Year
  Sex: Male

DRUGS (1)
  1. PROPECIA [Suspect]
     Indication: MALE PATTERN BALDNESS
     Route: 048
     Dates: start: 20040915, end: 20041001

REACTIONS (3)
  - OPTIC NEURITIS [None]
  - PAPILLOEDEMA [None]
  - VISUAL ACUITY REDUCED [None]
